FAERS Safety Report 16904386 (Version 1)
Quarter: 2019Q4

REPORT INFORMATION
  Report Type: Spontaneous
  Country: CO (occurrence: CO)
  Receive Date: 20191010
  Receipt Date: 20191010
  Transmission Date: 20200122
  Serious: Yes (Other)
  Sender: FDA-Public Use
  Company Number: CO-ASTRAZENECA-2019SF43156

PATIENT
  Age: 57 Year
  Sex: Female

DRUGS (2)
  1. FULVESTRANT. [Suspect]
     Active Substance: FULVESTRANT
     Dosage: MONTHLY
     Route: 030
     Dates: start: 201903
  2. REAMPLA [Suspect]
     Active Substance: PALBOCICLIB
     Route: 048
     Dates: start: 201903

REACTIONS (2)
  - Lung adenocarcinoma [Unknown]
  - Metastases to skin [Unknown]

NARRATIVE: CASE EVENT DATE: 20191002
